APPROVED DRUG PRODUCT: BUPRENORPHINE
Active Ingredient: BUPRENORPHINE
Strength: 7.5MCG/HR
Dosage Form/Route: FILM, EXTENDED RELEASE;TRANSDERMAL
Application: A207490 | Product #005
Applicant: STRIDES PHARMA INTERNATIONAL AG
Approved: Mar 21, 2023 | RLD: No | RS: No | Type: DISCN